FAERS Safety Report 21588872 (Version 2)
Quarter: 2023Q1

REPORT INFORMATION
  Report Type: Report from Study
  Country: US (occurrence: US)
  Receive Date: 20221114
  Receipt Date: 20230131
  Transmission Date: 20230418
  Serious: No
  Sender: FDA-Public Use
  Company Number: US-ABBVIE-4196538

PATIENT
  Age: 74 Year
  Sex: Female

DRUGS (7)
  1. VENCLEXTA [Suspect]
     Active Substance: VENETOCLAX
     Indication: Acute myeloid leukaemia
     Route: 048
     Dates: start: 20220425
  2. VENCLEXTA [Suspect]
     Active Substance: VENETOCLAX
     Indication: Acute myeloid leukaemia
     Route: 048
  3. MAGNESIUM, Metoprolol, Peridex Mouth/Throat, Pilocarpine [Concomitant]
     Indication: Product used for unknown indication
  4. Flonase, Fluconazole, Hydrocortisone, Latanoprost, Meclizine, [Concomitant]
     Indication: Product used for unknown indication
  5. Calcium Carbonate Antacid, Cosopt Ophthalmic Solution, Dexamethasone [Concomitant]
     Indication: Product used for unknown indication
  6. Acetaminophen, Acyclovir, Baclofen, Bentyl, busPIRone, Cimetidine [Concomitant]
     Indication: Product used for unknown indication
  7. Prochlorperazine, Prograf, Restasis, traMADol, Triamcinolone, VIT D [Concomitant]
     Indication: Product used for unknown indication

REACTIONS (2)
  - White blood cell count decreased [Unknown]
  - White blood cell count decreased [Recovering/Resolving]

NARRATIVE: CASE EVENT DATE: 20230105
